FAERS Safety Report 9197463 (Version 1)
Quarter: 2013Q1

REPORT INFORMATION
  Report Type: Report from Study
  Country: JP (occurrence: JP)
  Receive Date: 20130328
  Receipt Date: 20130328
  Transmission Date: 20140127
  Serious: Yes (Other)
  Sender: FDA-Public Use
  Company Number: JP-GLAXOSMITHKLINE-B0803314A

PATIENT
  Age: 64 Year
  Sex: Female
  Weight: 52 kg

DRUGS (4)
  1. TYKERB [Suspect]
     Indication: BREAST CANCER
     Route: 048
     Dates: start: 20120224, end: 20121130
  2. XELODA [Suspect]
     Indication: PRODUCT USED FOR UNKNOWN INDICATION
     Route: 048
     Dates: start: 20120224, end: 20121130
  3. THYRADIN S [Concomitant]
     Indication: HYPOTHYROIDISM
     Route: 048
  4. CINAL [Concomitant]
     Indication: PROPHYLAXIS
     Route: 048
     Dates: start: 20120224

REACTIONS (3)
  - Hyperbilirubinaemia [Recovering/Resolving]
  - Dermatitis acneiform [Recovering/Resolving]
  - Dry skin [Not Recovered/Not Resolved]
